FAERS Safety Report 4677654-8 (Version None)
Quarter: 2005Q2

REPORT INFORMATION
  Report Type: 
  Country: None (occurrence: None)
  Receive Date: 20050531
  Receipt Date: 20050222
  Transmission Date: 20051028
  Serious: Yes (Hospitalization, Other)
  Sender: FDA-Public Use
  Company Number: US-MERCK-0502USA03192

PATIENT
  Age: 61 Year
  Sex: Female
  Weight: 50 kg

DRUGS (15)
  1. INDAPAMIDE [Concomitant]
     Indication: HYPERTENSION
     Route: 065
     Dates: start: 20020101, end: 20050101
  2. VIOXX [Suspect]
     Indication: BACK PAIN
     Route: 048
     Dates: start: 20000601, end: 20040901
  3. VIOXX [Suspect]
     Route: 048
     Dates: start: 20000601, end: 20040901
  4. VIOXX [Suspect]
     Indication: ARTHRALGIA
     Route: 048
     Dates: start: 20000601, end: 20040901
  5. VIOXX [Suspect]
     Route: 048
     Dates: start: 20000601, end: 20040901
  6. PROTONIX [Concomitant]
     Indication: HORMONE REPLACEMENT THERAPY
     Route: 065
     Dates: start: 20030201, end: 20030101
  7. ZOLOFT [Concomitant]
     Indication: STRESS AT WORK
     Route: 065
     Dates: start: 20020101, end: 20050101
  8. XANAX [Concomitant]
     Indication: SLEEP DISORDER
     Route: 065
     Dates: start: 20020101, end: 20050101
  9. HYDROCHLOROTHIAZIDE [Concomitant]
     Route: 065
  10. PRILOSEC [Concomitant]
     Route: 048
     Dates: start: 19990101
  11. VITAMIN E [Concomitant]
     Route: 065
  12. ASCORBIC ACID [Concomitant]
     Route: 065
  13. VITAMINS (UNSPECIFIED) [Concomitant]
     Route: 065
     Dates: start: 20030201
  14. VITAMINS (UNSPECIFIED) [Concomitant]
     Route: 065
     Dates: start: 20030201
  15. PREMARIN [Concomitant]
     Route: 065
     Dates: start: 19880101, end: 20030101

REACTIONS (14)
  - ASTHENIA [None]
  - BUNDLE BRANCH BLOCK LEFT [None]
  - CARDIAC FAILURE CONGESTIVE [None]
  - CEREBROVASCULAR ACCIDENT [None]
  - CHEST PAIN [None]
  - CONGESTIVE CARDIOMYOPATHY [None]
  - DIPLOPIA [None]
  - DIZZINESS [None]
  - DRUG INEFFECTIVE [None]
  - EMOTIONAL DISTRESS [None]
  - INSOMNIA [None]
  - PAIN [None]
  - SINUS DISORDER [None]
  - SPINAL OSTEOARTHRITIS [None]
